FAERS Safety Report 24088396 (Version 2)
Quarter: 2024Q3

REPORT INFORMATION
  Report Type: Other
  Country: CZ (occurrence: CZ)
  Receive Date: 20240715
  Receipt Date: 20240726
  Transmission Date: 20241017
  Serious: Yes (Other)
  Sender: GLENMARK
  Company Number: None

PATIENT

DRUGS (7)
  1. RYALTRIS [Suspect]
     Active Substance: MOMETASONE FUROATE MONOHYDRATE\OLOPATADINE HYDROCHLORIDE
     Indication: Upper-airway cough syndrome
     Dosage: 2 DOSAGE FORM, BID (PER 12 HOURS) (2 SQUIRTS INTO EACH NOSTRIL TWICE A DAY)
     Route: 045
     Dates: start: 20240520
  2. RYALTRIS [Suspect]
     Active Substance: MOMETASONE FUROATE MONOHYDRATE\OLOPATADINE HYDROCHLORIDE
     Indication: Rhinitis
     Dosage: 2 DOSAGE FORM, BID (PER 12 HOURS) (2 SQUIRTS INTO EACH NOSTRIL TWICE A DAY) (RESTARTED)
     Route: 045
  3. BETAHISTINE [Concomitant]
     Active Substance: BETAHISTINE
     Indication: Oedema
     Dosage: 24 MILLIGRAM, BID (PER 12 HOURS) (~1TBL 1-0-1)
     Route: 048
     Dates: start: 20240520
  4. BETAHISTINE [Concomitant]
     Active Substance: BETAHISTINE
     Indication: Swelling
  5. GINKGO [Concomitant]
     Active Substance: GINKGO
     Indication: Oedema
     Dosage: 120 MILLIGRAM, AM
     Route: 048
     Dates: start: 20240520
  6. GINKGO [Concomitant]
     Active Substance: GINKGO
     Indication: Swelling
  7. EBASTINE [Concomitant]
     Active Substance: EBASTINE
     Indication: Seasonal allergy
     Dosage: UNK
     Route: 065

REACTIONS (1)
  - Tinnitus [Unknown]

NARRATIVE: CASE EVENT DATE: 20240520
